FAERS Safety Report 8794454 (Version 3)
Quarter: 2012Q4

REPORT INFORMATION
  Report Type: 
  Country: US (occurrence: US)
  Receive Date: 20120917
  Receipt Date: 20121017
  Transmission Date: 20130627
  Serious: No
  Sender: FDA-Public Use
  Company Number: US-VERTEX PHARMACEUTICAL INC.-AE-2012-005760

PATIENT
  Age: 55 Year
  Sex: Male

DRUGS (3)
  1. VX-950 [Suspect]
     Indication: HEPATITIS C
     Dosage: 750 mg, tid
     Route: 048
     Dates: start: 20120215, end: 20120511
  2. RIBAVIRIN [Concomitant]
     Indication: HEPATITIS C
     Dosage: 600 mg, bid
     Route: 048
     Dates: start: 20120215
  3. PEGASYS [Concomitant]
     Indication: HEPATITIS C
     Dosage: 180 ?g, UNK
     Route: 058
     Dates: start: 20120215

REACTIONS (10)
  - Influenza like illness [Not Recovered/Not Resolved]
  - White blood cell count decreased [Not Recovered/Not Resolved]
  - Dyspnoea [Not Recovered/Not Resolved]
  - Photosensitivity reaction [Not Recovered/Not Resolved]
  - Aggression [Not Recovered/Not Resolved]
  - Irritability [Not Recovered/Not Resolved]
  - Decreased appetite [Unknown]
  - Fatigue [Not Recovered/Not Resolved]
  - Blood potassium decreased [Unknown]
  - Anaemia [Not Recovered/Not Resolved]
